FAERS Safety Report 7044529-9 (Version None)
Quarter: 2010Q4

REPORT INFORMATION
  Report Type: 
  Country: None (occurrence: None)
  Receive Date: 20101014
  Receipt Date: 20100929
  Transmission Date: 20110411
  Serious: Yes (Hospitalization, Other)
  Sender: FDA-Public Use
  Company Number: PHHO2010BR10680

PATIENT
  Sex: Female
  Weight: 57.4 kg

DRUGS (4)
  1. NEORAL [Suspect]
     Indication: RENAL TRANSPLANT
     Dosage: 50 MG
     Route: 048
     Dates: start: 20090930, end: 20100922
  2. TACROLIMUS [Concomitant]
  3. MYFORTIC [Concomitant]
  4. PREDNISONE [Concomitant]

REACTIONS (7)
  - BLOOD CREATININE INCREASED [None]
  - CD4 LYMPHOCYTES INCREASED [None]
  - DRUG INEFFECTIVE [None]
  - GRAFT DYSFUNCTION [None]
  - KIDNEY TRANSPLANT REJECTION [None]
  - TRANSPLANT REJECTION [None]
  - TUBULOINTERSTITIAL NEPHRITIS [None]
